FAERS Safety Report 7542947-3 (Version None)
Quarter: 2011Q2

REPORT INFORMATION
  Report Type: 
  Country: None (occurrence: None)
  Receive Date: 20110524
  Receipt Date: 20110310
  Transmission Date: 20111010
  Serious: No
  Sender: FDA-Public Use
  Company Number: 024892

PATIENT
  Sex: Female
  Weight: 90.7 kg

DRUGS (8)
  1. CIMZIA [Suspect]
  2. VITAMIN B12 (CYANOCOBALAMIN AND DERIATIVES) [Concomitant]
  3. VITAMIN D [Concomitant]
  4. ZYRTEC [Concomitant]
  5. HYDROCHLOROTHIAZIDE [Concomitant]
  6. FERROUS SULFATE TAB [Concomitant]
  7. C-VITAMIN [Concomitant]
  8. CIMZIA [Suspect]
     Indication: CROHN'S DISEASE
     Dosage: (400 MG 1X/2 WEEKS SUBCUTANEOUS), (SUBCUTANEOUS)
     Route: 058
     Dates: start: 20101221

REACTIONS (7)
  - MALAISE [None]
  - ABDOMINAL DISTENSION [None]
  - CHEST DISCOMFORT [None]
  - FEELING OF BODY TEMPERATURE CHANGE [None]
  - COUGH [None]
  - ASTHENIA [None]
  - JARISCH-HERXHEIMER REACTION [None]
